FAERS Safety Report 4730259-2 (Version None)
Quarter: 2005Q3

REPORT INFORMATION
  Report Type: 
  Country: None (occurrence: None)
  Receive Date: 20050728
  Receipt Date: 20050721
  Transmission Date: 20060218
  Serious: Yes (Hospitalization, Disabling)
  Sender: FDA-Public Use
  Company Number: TPG2005A00250

PATIENT
  Age: 62 Year
  Sex: Female

DRUGS (4)
  1. ACTOS [Suspect]
     Indication: DIABETES MELLITUS
     Dosage: PER ORAL
     Route: 048
     Dates: start: 20041101
  2. AVANDIA (ROSIGILITAZONE MALEATE) [Concomitant]
  3. GLUCOPHAGE [Concomitant]
  4. AMARYL [Concomitant]

REACTIONS (3)
  - OPTIC NEURITIS [None]
  - PAPILLOEDEMA [None]
  - VISUAL ACUITY REDUCED [None]
